FAERS Safety Report 21006612 (Version 5)
Quarter: 2023Q2

REPORT INFORMATION
  Report Type: Report from Study
  Country: US (occurrence: US)
  Receive Date: 20220625
  Receipt Date: 20230425
  Transmission Date: 20230722
  Serious: Yes (Other)
  Sender: FDA-Public Use
  Company Number: US-ABBVIE-22K-163-4444534-00

PATIENT
  Age: 78 Year
  Sex: Female

DRUGS (3)
  1. IMBRUVICA [Suspect]
     Active Substance: IBRUTINIB
     Indication: Chronic lymphocytic leukaemia
     Route: 048
     Dates: start: 20190305
  2. IMBRUVICA [Suspect]
     Active Substance: IBRUTINIB
     Indication: Chronic lymphocytic leukaemia
     Route: 048
  3. IMBRUVICA [Suspect]
     Active Substance: IBRUTINIB
     Indication: Chronic lymphocytic leukaemia
     Route: 048

REACTIONS (17)
  - Breast operation [Unknown]
  - Stenosis [Unknown]
  - Haemoglobin decreased [Unknown]
  - Dyschezia [Unknown]
  - Urinary incontinence [Unknown]
  - Skin discolouration [Unknown]
  - Intervertebral disc degeneration [Recovering/Resolving]
  - Blood immunoglobulin M increased [Unknown]
  - Mobility decreased [Recovering/Resolving]
  - Stress fracture [Recovered/Resolved]
  - Eructation [Unknown]
  - Insomnia [Unknown]
  - Blood immunoglobulin G decreased [Unknown]
  - Red blood cell count decreased [Unknown]
  - Arthritis [Unknown]
  - Hypertonic bladder [Unknown]
  - Blood creatinine increased [Unknown]

NARRATIVE: CASE EVENT DATE: 20220201
